FAERS Safety Report 4874082-7 (Version None)
Quarter: 2006Q1

REPORT INFORMATION
  Report Type: 
  Country: None (occurrence: None)
  Receive Date: 20060104
  Receipt Date: 20051220
  Transmission Date: 20060701
  Serious: Yes (Hospitalization, Other)
  Sender: FDA-Public Use
  Company Number: 2005172029

PATIENT
  Age: 78 Year
  Sex: Female
  Weight: 105.2345 kg

DRUGS (7)
  1. LIPITOR [Suspect]
     Indication: BLOOD CHOLESTEROL INCREASED
     Dosage: 10 MG (10 MG 1 IN 1D) ORAL
     Route: 048
     Dates: start: 20000101
  2. PROCARDIA XL [Suspect]
     Indication: HYPERTENSION
     Dosage: 60 MG (60 MG 1 IN 1 D) ORAL
     Route: 048
     Dates: start: 20000101
  3. PROPANOLOL (PROPANOLOL) [Concomitant]
  4. ATACAND [Concomitant]
  5. GLYBURIDE [Concomitant]
  6. LEVOTHYROXINE SODIUM [Concomitant]
  7. ALL OTHER THERAPEUTIC PRODUCT [Concomitant]

REACTIONS (2)
  - KNEE ARTHROPLASTY [None]
  - PROCEDURAL PAIN [None]
